FAERS Safety Report 5309413-7 (Version None)
Quarter: 2007Q1

REPORT INFORMATION
  Report Type: 
  Country: None (occurrence: None)
  Receive Date: 20070224
  Receipt Date: 20070224
  Transmission Date: 20070707
  Serious: No
  Sender: FDA-Public Use
  Company Number: None

PATIENT
  Age: 43 Year
  Sex: Male

DRUGS (1)
  1. ISOPHANE INSULIN [Suspect]

REACTIONS (3)
  - ADVERSE DRUG REACTION [None]
  - CONVULSION [None]
  - HYPOGLYCAEMIA [None]
